FAERS Safety Report 12931537 (Version 2)
Quarter: 2016Q4

REPORT INFORMATION
  Report Type: Report from Study
  Country: UG (occurrence: UG)
  Receive Date: 20161110
  Receipt Date: 20161115
  Transmission Date: 20170207
  Serious: Yes (Life-Threatening, Hospitalization, Other)
  Sender: FDA-Public Use
  Company Number: UG-GILEAD-2016-0212079

PATIENT
  Age: 36 Year
  Sex: Male
  Weight: 66 kg

DRUGS (5)
  1. EFAVIRENZ/EMTRICITABINE/TENOFOVIR DISOPROXIL FUMARATE [Suspect]
     Active Substance: EFAVIRENZ\EMTRICITABINE\TENOFOVIR DISOPROXIL FUMARATE
     Indication: ACQUIRED IMMUNODEFICIENCY SYNDROME
     Dosage: 1100 MG, QD
     Route: 048
     Dates: start: 20151021, end: 20160801
  2. COTRIMOXAZOLE [Concomitant]
     Active Substance: SULFAMETHOXAZOLE\TRIMETHOPRIM
     Indication: PROPHYLAXIS
     Dosage: 1 DF, ONCE
     Route: 048
     Dates: start: 20160420, end: 20160420
  3. ETOPOSIDE. [Suspect]
     Active Substance: ETOPOSIDE
     Indication: KAPOSI^S SARCOMA
     Dosage: 200 MG, BID
     Route: 048
     Dates: start: 20151021, end: 20160329
  4. EFAVIRENZ/EMTRICITABINE/TENOFOVIR DISOPROXIL FUMARATE [Suspect]
     Active Substance: EFAVIRENZ\EMTRICITABINE\TENOFOVIR DISOPROXIL FUMARATE
     Indication: KAPOSI^S SARCOMA
  5. ETOPOSIDE. [Suspect]
     Active Substance: ETOPOSIDE
     Dosage: 50 MG, BID
     Route: 048
     Dates: start: 20151021, end: 20160323

REACTIONS (3)
  - Encephalitis [Recovered/Resolved with Sequelae]
  - Neutropenia [Unknown]
  - Encephalitis [Recovered/Resolved]

NARRATIVE: CASE EVENT DATE: 20160421
